FAERS Safety Report 24911331 (Version 3)
Quarter: 2025Q1

REPORT INFORMATION
  Report Type: Report from Study
  Country: BE (occurrence: BE)
  Receive Date: 20250131
  Receipt Date: 20250303
  Transmission Date: 20250409
  Serious: Yes (Disabling, Other)
  Sender: CSL BEHRING
  Company Number: BE-BEH-2025193555

PATIENT
  Sex: Male

DRUGS (2)
  1. HIZENTRA [Suspect]
     Active Substance: HUMAN IMMUNOGLOBULIN G
     Indication: Primary immunodeficiency syndrome
     Dosage: 6 G, QW
     Route: 058
  2. DAFALGAN [Concomitant]
     Active Substance: ACETAMINOPHEN

REACTIONS (5)
  - Aphasia [Unknown]
  - Mental disability [Unknown]
  - Physical disability [Unknown]
  - Headache [Unknown]
  - Insomnia [Unknown]
